FAERS Safety Report 7412382-7 (Version None)
Quarter: 2011Q2

REPORT INFORMATION
  Report Type: 
  Country: None (occurrence: None)
  Receive Date: 20110413
  Receipt Date: 20110411
  Transmission Date: 20111010
  Serious: Yes (Disabling, Other)
  Sender: FDA-Public Use
  Company Number: US-PFIZER INC-2011079804

PATIENT
  Sex: Female
  Weight: 82 kg

DRUGS (8)
  1. LIPITOR [Suspect]
     Indication: BLOOD CHOLESTEROL INCREASED
     Dosage: 40 MG, DAILY
     Route: 048
  2. HYZAAR [Concomitant]
     Indication: HYPERTENSION
     Dosage: 125 MG, UNK
  3. INSULIN [Concomitant]
     Indication: DIABETES MELLITUS
     Dosage: UNK, 2X/DAY
  4. NOVOLIN 70/30 [Concomitant]
     Indication: DIABETES MELLITUS
     Dosage: 29 UNITS IN THE MORNING AND 30 UNITS AT NIGHT, 2X/DAY
  5. GLIPIZIDE [Concomitant]
     Indication: DIABETES MELLITUS
     Dosage: 10 MG, 2X/DAY
  6. METFORMIN [Concomitant]
     Indication: DIABETES MELLITUS
     Dosage: 500 MG, 1X/DAY
  7. POTASSIUM [Concomitant]
     Dosage: UNK
  8. DILTIAZEM [Concomitant]
     Indication: HEART RATE IRREGULAR
     Dosage: 90 MG, 4X/DAY

REACTIONS (3)
  - WEIGHT DECREASED [None]
  - EYE HAEMORRHAGE [None]
  - GLAUCOMA [None]
